FAERS Safety Report 25657301 (Version 1)
Quarter: 2025Q3

REPORT INFORMATION
  Report Type: Report from Study
  Country: EU (occurrence: EU)
  Receive Date: 20250808
  Receipt Date: 20250808
  Transmission Date: 20251020
  Serious: Yes (Disabling)
  Sender: TEVA
  Company Number: EU-TEVA-VS-3336188

PATIENT
  Age: 68 Year
  Sex: Female

DRUGS (7)
  1. TERIPARATIDE [Suspect]
     Active Substance: TERIPARATIDE
     Indication: Osteoporosis
     Route: 065
     Dates: start: 20250523, end: 20250729
  2. RYBELSUS [Concomitant]
     Active Substance: SEMAGLUTIDE
     Indication: Type 2 diabetes mellitus
     Dosage: DOSE: ONE PER DAY 30 MINUTES BEFORE BREAKFAST; START DATE: SOME TIME AGO; END DATE: CONTINUES
  3. METFORMIN [Concomitant]
     Active Substance: METFORMIN HYDROCHLORIDE
     Indication: Type 2 diabetes mellitus
     Dosage: HALF IN THE MORNING AND HALF AT NIGHT; START DATE: SOME TIME AGO; END DATE: CONTINUES
  4. Arrox [Concomitant]
     Indication: Dyslipidaemia
     Dosage: ONE IN THE AFTERNOON; START DATE: SOME TIME AGO; END DATE: CONTINUES
  5. VITAMIN D NOS [Concomitant]
     Active Substance: CHOLECALCIFEROL\ERGOCALCIFEROL
     Indication: Osteoporosis
     Dosage: DOSE: ONE PER MONTH; START DATE: 2025-05; END DATE: CONTINUES
     Dates: start: 202505
  6. MIRABEGRON [Concomitant]
     Active Substance: MIRABEGRON
     Indication: Hypertonic bladder
     Dosage: DOSE: ONE IN THE MORNING; START DATE: SOME TIME AGO; END DATE: CONTINUES.
  7. ACETAMINOPHEN [Concomitant]
     Active Substance: ACETAMINOPHEN
     Indication: Pain

REACTIONS (7)
  - Erythema [Recovered/Resolved]
  - Tachycardia [Not Recovered/Not Resolved]
  - Aphonia [Recovered/Resolved]
  - Hypersomnia [Not Recovered/Not Resolved]
  - Fatigue [Not Recovered/Not Resolved]
  - Feeling abnormal [Not Recovered/Not Resolved]
  - Dysphonia [Recovered/Resolved]

NARRATIVE: CASE EVENT DATE: 20250523
